FAERS Safety Report 25665410 (Version 2)
Quarter: 2025Q4

REPORT INFORMATION
  Report Type: Spontaneous
  Country: US (occurrence: US)
  Receive Date: 20250811
  Receipt Date: 20251110
  Transmission Date: 20260117
  Serious: Yes (Other)
  Sender: BIOVITRUM
  Company Number: US-BIOVITRUM-2025-US-010811

PATIENT
  Age: 55 Year
  Sex: Female

DRUGS (1)
  1. VONJO [Suspect]
     Active Substance: PACRITINIB
     Indication: Myelofibrosis
     Dosage: BID
     Route: 048
     Dates: start: 20250108

REACTIONS (13)
  - Ankle fracture [Recovering/Resolving]
  - Product dose omission issue [Unknown]
  - Fall [Unknown]
  - Myocardial infarction [Unknown]
  - Malaise [Unknown]
  - Adverse drug reaction [Unknown]
  - Activities of daily living decreased [Unknown]
  - Bedridden [Unknown]
  - General physical health deterioration [Unknown]
  - Loss of personal independence in daily activities [Unknown]
  - Pain [Unknown]
  - Emotional disorder [Unknown]
  - Gait inability [Unknown]
